FAERS Safety Report 6523958-3 (Version None)
Quarter: 2009Q4

REPORT INFORMATION
  Report Type: 
  Country: None (occurrence: None)
  Receive Date: 20091231
  Receipt Date: 20091223
  Transmission Date: 20100525
  Serious: Yes (Other)
  Sender: FDA-Public Use
  Company Number: GB-BRISTOL-MYERS SQUIBB COMPANY-14910889

PATIENT

DRUGS (1)
  1. ABILIFY [Suspect]
     Route: 048

REACTIONS (1)
  - SURGERY [None]
